FAERS Safety Report 9202714 (Version 2)
Quarter: 2014Q1

REPORT INFORMATION
  Report Type: Spontaneous
  Country: US (occurrence: US)
  Receive Date: 20130401
  Receipt Date: 20140131
  Transmission Date: 20141002
  Serious: Yes (Other)
  Sender: FDA-Public Use
  Company Number: US-BAYER-2013-039435

PATIENT
  Age: 17 Year
  Sex: Female

DRUGS (4)
  1. YASMIN [Suspect]
     Route: 048
  2. YAZ [Suspect]
     Route: 048
  3. ZANTAC [Concomitant]
  4. LORTAB [Concomitant]

REACTIONS (4)
  - Cholecystectomy [None]
  - Cholecystitis [None]
  - Injury [None]
  - Pain [None]
